FAERS Safety Report 9036472 (Version 1)
Quarter: 2013Q1

REPORT INFORMATION
  Report Type: Spontaneous
  Country: ES (occurrence: None)
  Receive Date: 20130114
  Receipt Date: 20130114
  Transmission Date: 20140127
  Serious: Yes (Other)
  Sender: FDA-Public Use
  Company Number: DSA_61834_2013

PATIENT
  Age: 40 Year
  Sex: Female

DRUGS (1)
  1. FLAGYL /00012501/ (FLAGYL (METRONIDAZOLE)) 250 MG (NOT SPECIFIED) [Suspect]
     Indication: PRODUCT USED FOR UNKNOWN INDICATION
     Dosage: (DF)
     Route: 048
     Dates: start: 20120721, end: 20120725

REACTIONS (1)
  - Hepatitis cholestatic [None]
